FAERS Safety Report 7276260-9 (Version None)
Quarter: 2011Q1

REPORT INFORMATION
  Report Type: 
  Country: None (occurrence: None)
  Receive Date: 20110204
  Receipt Date: 20110126
  Transmission Date: 20110831
  Serious: Yes (Other)
  Sender: FDA-Public Use
  Company Number: CA-JNJCH-2010022405

PATIENT
  Age: 63 Year
  Sex: Male
  Weight: 86.2 kg

DRUGS (4)
  1. LIPITOR [Concomitant]
     Indication: HYPERCHOLESTEROLAEMIA
     Dosage: TEXT:UNKNOWN
     Route: 065
  2. VASOTEC [Concomitant]
     Indication: CARDIAC DISORDER
     Dosage: TEXT:UNKNOWN
     Route: 065
  3. ROLAIDS MULTI-SYMPTOM [Suspect]
     Indication: DYSPEPSIA
     Dosage: TEXT:2-3 TABLETS 2-3 TIMES DAILY
     Route: 048
  4. PLAVIX [Concomitant]
     Indication: HYPERTENSION
     Dosage: TEXT:UNKNOWN
     Route: 065

REACTIONS (5)
  - GASTROINTESTINAL DISORDER [None]
  - IRRITABLE BOWEL SYNDROME [None]
  - DIVERTICULITIS [None]
  - GASTROOESOPHAGEAL REFLUX DISEASE [None]
  - PRODUCT QUALITY ISSUE [None]
